FAERS Safety Report 19074078 (Version 2)
Quarter: 2021Q2

REPORT INFORMATION
  Report Type: Report from Study
  Country: US (occurrence: US)
  Receive Date: 20210330
  Receipt Date: 20210422
  Transmission Date: 20210717
  Serious: Yes (Hospitalization, Other)
  Sender: FDA-Public Use
  Company Number: US-JNJFOC-20210300031

PATIENT
  Age: 70 Year
  Sex: Female

DRUGS (2)
  1. MACITENTAN [Suspect]
     Active Substance: MACITENTAN
     Indication: PULMONARY ARTERIAL HYPERTENSION
     Route: 048
  2. TADALAFIL. [Concomitant]
     Active Substance: TADALAFIL

REACTIONS (7)
  - COVID-19 pneumonia [Unknown]
  - Atrial fibrillation [Unknown]
  - Dizziness [Unknown]
  - Lower respiratory tract infection [Unknown]
  - Skin ulcer [Unknown]
  - Dyspnoea [Unknown]
  - Hunger [Unknown]

NARRATIVE: CASE EVENT DATE: 20210330
